FAERS Safety Report 9024504 (Version 1)
Quarter: 2013Q1

REPORT INFORMATION
  Report Type: Spontaneous
  Country: US (occurrence: US)
  Receive Date: 20130121
  Receipt Date: 20130121
  Transmission Date: 20140127
  Serious: Yes (Other)
  Sender: FDA-Public Use
  Company Number: US-JNJFOC-20130103533

PATIENT
  Sex: Male

DRUGS (7)
  1. REMICADE [Suspect]
     Indication: COLITIS ULCERATIVE
     Dosage: INFLIXIMAB FOR 3 YEARS
     Route: 042
  2. REMICADE [Suspect]
     Indication: COLITIS ULCERATIVE
     Dosage: DOSE 2
     Route: 042
     Dates: end: 201111
  3. REMICADE [Suspect]
     Indication: COLITIS ULCERATIVE
     Route: 042
     Dates: start: 201204
  4. PREDNISONE [Concomitant]
     Indication: PREMEDICATION
     Route: 065
  5. CIMETIDINE [Concomitant]
     Indication: PREMEDICATION
     Route: 065
  6. LORATADINE [Concomitant]
     Indication: PREMEDICATION
     Route: 065
  7. PREDNISONE [Concomitant]
     Indication: PREMEDICATION
     Route: 042

REACTIONS (5)
  - Tachycardia [Unknown]
  - Infusion related reaction [Unknown]
  - Chest discomfort [Unknown]
  - Chest pain [Unknown]
  - Flushing [Unknown]
